FAERS Safety Report 19693152 (Version 1)
Quarter: 2021Q3

REPORT INFORMATION
  Report Type: Report from Study
  Country: US (occurrence: US)
  Receive Date: 20210812
  Receipt Date: 20210812
  Transmission Date: 20211014
  Serious: Yes (Hospitalization)
  Sender: FDA-Public Use
  Company Number: US-ASTRAZENECA-2021A671196

PATIENT
  Sex: Female
  Weight: 58 kg

DRUGS (1)
  1. FASENRA [Suspect]
     Active Substance: BENRALIZUMAB
     Indication: RESPIRATORY DISORDER
     Route: 058

REACTIONS (4)
  - Drug ineffective [Unknown]
  - Drug delivery system issue [Unknown]
  - Suicide attempt [Unknown]
  - Dyspnoea [Not Recovered/Not Resolved]
